FAERS Safety Report 18018868 (Version 1)
Quarter: 2020Q3

REPORT INFORMATION
  Report Type: Spontaneous
  Country: US (occurrence: US)
  Receive Date: 20200713
  Receipt Date: 20200713
  Transmission Date: 20201103
  Serious: No
  Sender: FDA-Public Use
  Company Number: None

PATIENT
  Age: 69 Year
  Sex: Female
  Weight: 45.45 kg

DRUGS (4)
  1. ZIAPTON [Concomitant]
  2. ALPHAGAN P EYE DROPS [Concomitant]
  3. NITROFURANTOIN. BRAND NAME: MACROBID MACRODANTIN [Suspect]
     Active Substance: NITROFURANTOIN
     Indication: URINARY TRACT INFECTION
     Route: 048
  4. TURMERIC [Concomitant]
     Active Substance: HERBALS\TURMERIC

REACTIONS (6)
  - Chills [None]
  - Decreased appetite [None]
  - Somnolence [None]
  - Nausea [None]
  - Asthenia [None]
  - Feeling abnormal [None]

NARRATIVE: CASE EVENT DATE: 20200706
